FAERS Safety Report 4595146-1 (Version None)
Quarter: 2005Q1

REPORT INFORMATION
  Report Type: 
  Country: None (occurrence: None)
  Receive Date: 20050224
  Receipt Date: 20040331
  Transmission Date: 20050727
  Serious: Yes (Hospitalization)
  Sender: FDA-Public Use
  Company Number: GXKR2004NO00737

PATIENT
  Age: 79 Year
  Sex: Female

DRUGS (10)
  1. LISINOPRIL AND HYDROCHLOROTHIAZIDE [Suspect]
     Dosage: 2 TABLETS, QD
  2. METFORMIN HCL [Suspect]
     Indication: DIABETES MELLITUS
  3. CARVEDILOL [Suspect]
     Dosage: 6.25 MG, QD
  4. ATORVASTATIN (NGX) (ATORVASTATIN) [Suspect]
     Dosage: 20 MG, QD
  5. SPIRONOLACTONE [Suspect]
     Dosage: 50 MG, QD
  6. FUROSEMIDE [Suspect]
     Dosage: 40 MG, QD
  7. POTASSIUM CHLORIDE [Suspect]
     Dosage: 750 MG, QD
  8. PREDNISOL (PREDNISOLONE) [Suspect]
     Indication: POLYMYALGIA RHEUMATICA
     Dosage: LOW DOSE
  9. ALLOPURINOL [Suspect]
     Indication: ARTHRITIS
  10. ASPIRIN [Suspect]
     Dosage: 75 MG

REACTIONS (15)
  - BLOOD PHOSPHORUS INCREASED [None]
  - CARDIAC FAILURE [None]
  - DEHYDRATION [None]
  - ELECTROCARDIOGRAM QRS COMPLEX PROLONGED [None]
  - ELECTROCARDIOGRAM T WAVE ABNORMAL [None]
  - HYPERKALAEMIA [None]
  - HYPONATRAEMIA [None]
  - HYPOTENSION [None]
  - METABOLIC ACIDOSIS [None]
  - PALLOR [None]
  - PERIPHERAL COLDNESS [None]
  - POLYMYALGIA RHEUMATICA [None]
  - PULSE ABSENT [None]
  - RENAL FAILURE ACUTE [None]
  - URINARY TRACT INFECTION [None]
